FAERS Safety Report 8115570-X (Version None)
Quarter: 2012Q1

REPORT INFORMATION
  Report Type: 
  Country: None (occurrence: None)
  Receive Date: 20120206
  Receipt Date: 20120124
  Transmission Date: 20120608
  Serious: Yes (Other)
  Sender: FDA-Public Use
  Company Number: US-PFIZER INC-2012019874

PATIENT
  Sex: Male

DRUGS (1)
  1. BENEFIX [Suspect]
     Indication: FACTOR IX DEFICIENCY
     Dosage: ^HAS HAD MANY DOSES^

REACTIONS (7)
  - VOMITING [None]
  - ANAPHYLACTIC REACTION [None]
  - ERYTHEMA [None]
  - ABDOMINAL PAIN [None]
  - URTICARIA [None]
  - EAR PAIN [None]
  - PRURITUS [None]
